FAERS Safety Report 16814716 (Version 1)
Quarter: 2019Q3

REPORT INFORMATION
  Report Type: Spontaneous
  Country: FR (occurrence: FR)
  Receive Date: 20190917
  Receipt Date: 20190917
  Transmission Date: 20191005
  Serious: Yes (Life-Threatening)
  Sender: FDA-Public Use
  Company Number: FR-TEVA-2019-FR-1106937

PATIENT
  Age: 38 Year
  Sex: Male

DRUGS (2)
  1. DIAZEPAM. [Suspect]
     Active Substance: DIAZEPAM
     Dosage: 40 MG PER 1 TOTAL
     Route: 048
     Dates: start: 20190617, end: 20190617
  2. METHADONE AP-HP 20 MG, G?LULE [Suspect]
     Active Substance: METHADONE HYDROCHLORIDE
     Indication: DRUG DEPENDENCE
     Dosage: 400 MG PER 1 TOTAL
     Route: 048
     Dates: start: 20190617, end: 20190617

REACTIONS (3)
  - Drug abuse [Recovered/Resolved]
  - Bradypnoea [Recovered/Resolved]
  - Loss of consciousness [Recovered/Resolved]

NARRATIVE: CASE EVENT DATE: 20190617
